FAERS Safety Report 16588967 (Version 8)
Quarter: 2022Q2

REPORT INFORMATION
  Report Type: Spontaneous
  Country: US (occurrence: US)
  Receive Date: 20190718
  Receipt Date: 20220527
  Transmission Date: 20220720
  Serious: Yes (Other)
  Sender: FDA-Public Use
  Company Number: None

PATIENT
  Age: 64 Year
  Sex: Female
  Weight: 49 kg

DRUGS (1)
  1. KYMRIAH [Suspect]
     Active Substance: TISAGENLECLEUCEL
     Indication: Diffuse large B-cell lymphoma
     Dosage: UNK, ONCE/SINGLE
     Route: 042
     Dates: start: 20190521

REACTIONS (13)
  - Cytokine release syndrome [Unknown]
  - Pyrexia [Unknown]
  - Hypotension [Unknown]
  - Chills [Unknown]
  - Orthostatic hypotension [Unknown]
  - Tachycardia [Unknown]
  - Fatigue [Unknown]
  - Immune effector cell-associated neurotoxicity syndrome [Unknown]
  - Hemiparesis [Unknown]
  - Memory impairment [Unknown]
  - Aphasia [Unknown]
  - Somnolence [Unknown]
  - Neurotoxicity [Recovered/Resolved]

NARRATIVE: CASE EVENT DATE: 20190522
